FAERS Safety Report 21099586 (Version 1)
Quarter: 2022Q3

REPORT INFORMATION
  Report Type: Spontaneous
  Country: SK (occurrence: SK)
  Receive Date: 20220719
  Receipt Date: 20220719
  Transmission Date: 20221027
  Serious: Yes (Other)
  Sender: FDA-Public Use
  Company Number: SK-AMGEN-SVKSP2022122510

PATIENT
  Age: 60 Year
  Sex: Female

DRUGS (1)
  1. PROLIA [Suspect]
     Active Substance: DENOSUMAB
     Indication: Osteoporosis postmenopausal
     Dosage: UNK UNK, Q6MO
     Route: 058
     Dates: start: 2018

REACTIONS (8)
  - Osteonecrosis of jaw [Unknown]
  - Myocardial ischaemia [Unknown]
  - Alcoholism [Unknown]
  - Angina pectoris [Unknown]
  - Tooth extraction [Unknown]
  - Spinal pain [Unknown]
  - Tobacco abuse [Unknown]
  - Hypertension [Unknown]

NARRATIVE: CASE EVENT DATE: 20210101
